FAERS Safety Report 9789969 (Version 1)
Quarter: 2013Q4

REPORT INFORMATION
  Report Type: Spontaneous
  Country: US (occurrence: None)
  Receive Date: 20131230
  Receipt Date: 20131230
  Transmission Date: 20140711
  Serious: Yes (Disabling)
  Sender: FDA-Public Use
  Company Number: None

PATIENT
  Age: 43 Year
  Sex: Male
  Weight: 113.4 kg

DRUGS (2)
  1. TOPAMAX [Suspect]
     Indication: INTERVERTEBRAL DISC DEGENERATION
     Dosage: 1/2 PILL, TWICE DAILY, TAKEN BY MOUTH
     Route: 048
     Dates: start: 20121001, end: 20131227
  2. TOPAMAX [Suspect]
     Indication: HEADACHE
     Dosage: 1/2 PILL, TWICE DAILY, TAKEN BY MOUTH
     Route: 048
     Dates: start: 20121001, end: 20131227

REACTIONS (15)
  - Personality change [None]
  - Social avoidant behaviour [None]
  - Hostility [None]
  - Irritability [None]
  - Morose [None]
  - Memory impairment [None]
  - Vision blurred [None]
  - Cognitive disorder [None]
  - Thinking abnormal [None]
  - Mood swings [None]
  - Marital problem [None]
  - General physical health deterioration [None]
  - Anger [None]
  - Anxiety [None]
  - Hypertension [None]
